FAERS Safety Report 5065805-5 (Version None)
Quarter: 2006Q3

REPORT INFORMATION
  Report Type: 
  Country: None (occurrence: None)
  Receive Date: 20060731
  Receipt Date: 20060725
  Transmission Date: 20061208
  Serious: Yes (Other)
  Sender: FDA-Public Use
  Company Number: IE-GLAXOSMITHKLINE-B0432246A

PATIENT
  Age: 38 Year
  Sex: Female

DRUGS (1)
  1. NIQUITIN CQ [Suspect]
     Dosage: 1PAT PER DAY
     Route: 062
     Dates: start: 20060420, end: 20060504

REACTIONS (2)
  - PARAESTHESIA [None]
  - RASH ERYTHEMATOUS [None]
